FAERS Safety Report 6062311-6 (Version None)
Quarter: 2009Q1

REPORT INFORMATION
  Report Type: 
  Country: None (occurrence: None)
  Receive Date: 20090203
  Receipt Date: 20090121
  Transmission Date: 20090719
  Serious: Yes (Death)
  Sender: FDA-Public Use
  Company Number: US-JNJFOC-20090106927

PATIENT
  Sex: Male

DRUGS (5)
  1. FENTANYL-75 [Suspect]
     Indication: DRUG USE FOR UNKNOWN INDICATION
     Route: 062
  2. ZOLOFT [Concomitant]
  3. ULTRAM [Concomitant]
  4. TYLENOL [Concomitant]
  5. MOTRIN [Concomitant]

REACTIONS (2)
  - DEATH [None]
  - DRUG LEVEL INCREASED [None]
